FAERS Safety Report 4304288-7 (Version None)
Quarter: 2004Q1

REPORT INFORMATION
  Report Type: 
  Country: None (occurrence: None)
  Receive Date: 20040224
  Receipt Date: 20040211
  Transmission Date: 20041129
  Serious: No
  Sender: FDA-Public Use
  Company Number: 04P-163-0250434-00

PATIENT

DRUGS (1)
  1. HUMIRA 40/0.8 ML PRE-FILLED SYRINGE (HUMIR) (ADALIMUMAB) [Suspect]
     Dosage: 40 MG, SUBCUTANEOUS
     Route: 058

REACTIONS (3)
  - INFLUENZA LIKE ILLNESS [None]
  - LYMPHADENOPATHY [None]
  - MENINGITIS ASEPTIC [None]
